FAERS Safety Report 24960684 (Version 1)
Quarter: 2025Q1

REPORT INFORMATION
  Report Type: Spontaneous
  Country: GR (occurrence: GR)
  Receive Date: 20250212
  Receipt Date: 20250212
  Transmission Date: 20250409
  Serious: Yes (Hospitalization, Other)
  Sender: PFIZER
  Company Number: GR-UCBSA-2025006051

PATIENT
  Age: 12 Year
  Sex: Male

DRUGS (9)
  1. LEVETIRACETAM [Suspect]
     Active Substance: LEVETIRACETAM
  2. BRIVARACETAM [Suspect]
     Active Substance: BRIVARACETAM
  3. ETHOSUXIMIDE [Concomitant]
     Active Substance: ETHOSUXIMIDE
  4. TOPIRAMATE [Concomitant]
     Active Substance: TOPIRAMATE
  5. CLOBAZAM [Concomitant]
     Active Substance: CLOBAZAM
  6. RUFINAMIDE [Concomitant]
     Active Substance: RUFINAMIDE
  7. PERAMPANEL [Concomitant]
     Active Substance: PERAMPANEL
  8. CANNABIDIOL [Concomitant]
     Active Substance: CANNABIDIOL
  9. VALPROIC ACID [Concomitant]
     Active Substance: VALPROIC ACID

REACTIONS (6)
  - Near drowning [Recovered/Resolved]
  - Tonic convulsion [Unknown]
  - Intellectual disability [Unknown]
  - Vagal nerve stimulator implantation [Unknown]
  - Learning disability [Unknown]
  - Multiple-drug resistance [Unknown]
